FAERS Safety Report 18657140 (Version 1)
Quarter: 2020Q4

REPORT INFORMATION
  Report Type: Spontaneous
  Country: CN (occurrence: CN)
  Receive Date: 20201224
  Receipt Date: 20201224
  Transmission Date: 20210114
  Serious: Yes (Other)
  Sender: FDA-Public Use
  Company Number: CN-ROCHE-2733674

PATIENT
  Age: 59 Year
  Sex: Female
  Weight: 68 kg

DRUGS (1)
  1. PERJETA [Suspect]
     Active Substance: PERTUZUMAB
     Indication: BREAST CANCER
     Route: 041
     Dates: start: 20201118, end: 20201118

REACTIONS (6)
  - Dry mouth [Unknown]
  - Sinus tachycardia [Unknown]
  - Chest discomfort [Recovered/Resolved]
  - Chills [Recovered/Resolved]
  - Hyperpyrexia [Recovered/Resolved]
  - Temperature intolerance [Recovering/Resolving]

NARRATIVE: CASE EVENT DATE: 20201118
